FAERS Safety Report 7232319-3 (Version None)
Quarter: 2011Q1

REPORT INFORMATION
  Report Type: 
  Country: None (occurrence: None)
  Receive Date: 20110106
  Receipt Date: 20101228
  Transmission Date: 20110831
  Serious: Yes (Hospitalization)
  Sender: FDA-Public Use
  Company Number: VISP-NO-1012S-0570

PATIENT
  Age: 30 Year
  Sex: Female

DRUGS (10)
  1. GENTAMICIN [Suspect]
     Dates: start: 20100923, end: 20100925
  2. CIPROFLOXACIN [Suspect]
     Dates: start: 20100923, end: 20100925
  3. AZTREONAM [Suspect]
     Dates: start: 20100917, end: 20100923
  4. VISIPAQUE [Suspect]
     Indication: BRAIN NEOPLASM MALIGNANT
     Dosage: SINGLE DOSE,
     Dates: start: 20100921, end: 20100921
  5. VISIPAQUE [Suspect]
     Indication: MENINGITIS ENTEROCOCCAL
     Dosage: SINGLE DOSE,
     Dates: start: 20100921, end: 20100921
  6. CLAFORAN [Suspect]
  7. BACTRIM [Suspect]
     Dates: start: 20100917, end: 20100923
  8. FOSFOMYCIN [Suspect]
     Dates: start: 20100901, end: 20100903
  9. VANCOMYCIN [Suspect]
     Dates: start: 20100903, end: 20100927
  10. FOSFOMYCIN [Suspect]
     Dates: start: 20100925, end: 20100927

REACTIONS (1)
  - DRUG RASH WITH EOSINOPHILIA AND SYSTEMIC SYMPTOMS [None]
